FAERS Safety Report 7763353 (Version 5)
Quarter: 2013Q2

REPORT INFORMATION
  Report Type: Spontaneous
  Country: US (occurrence: US)
  Receive Date: 20110118
  Receipt Date: 20130402
  Transmission Date: 20140414
  Serious: Yes (Hospitalization)
  Sender: FDA-Public Use
  Company Number: US-BAYER-2011-004767

PATIENT
  Age: 32 Year
  Sex: Female
  Weight: 118 kg

DRUGS (6)
  1. YASMIN [Suspect]
     Dosage: UNK
     Dates: start: 20041014, end: 2005
  2. YASMIN [Suspect]
     Dosage: UNK
     Dates: start: 200204, end: 20050623
  3. EFFEXOR [Concomitant]
     Indication: DEPRESSION
     Dosage: OFF AND ON
     Dates: start: 1996
  4. WELLBUTRIN [Concomitant]
     Indication: DEPRESSION
     Dosage: OFF AND ON
     Dates: start: 1996
  5. TOPOMAX [Concomitant]
     Indication: MIGRAINE
     Dosage: UNK
     Dates: start: 201011
  6. LEXAPRO [Concomitant]
     Dosage: 20 MG, UNK

REACTIONS (5)
  - Gallbladder disorder [None]
  - Cholecystitis chronic [None]
  - General physical health deterioration [None]
  - Emotional distress [None]
  - Injury [None]
